FAERS Safety Report 10219472 (Version 1)
Quarter: 2014Q2

REPORT INFORMATION
  Report Type: Spontaneous
  Country: GB (occurrence: GB)
  Receive Date: 20140605
  Receipt Date: 20140605
  Transmission Date: 20141212
  Serious: Yes (Life-Threatening, Other)
  Sender: FDA-Public Use
  Company Number: GB-ASTRAZENECA-2014SE38658

PATIENT
  Age: 76 Year
  Sex: Female
  Weight: 81 kg

DRUGS (6)
  1. LISINOPRIL [Suspect]
     Route: 048
     Dates: end: 20140521
  2. ASPIRIN [Concomitant]
  3. COLECALCIFEROL [Concomitant]
     Dates: start: 20140424
  4. HYOSCINE BUTYLBROMIDE [Concomitant]
  5. SIMVASTATIN [Concomitant]
  6. TRIMETHOPRIM [Concomitant]
     Indication: URINARY TRACT INFECTION
     Dates: start: 20140411

REACTIONS (3)
  - Obstructive airways disorder [Recovered/Resolved]
  - Dyspnoea [Recovered/Resolved]
  - Swollen tongue [Recovered/Resolved]
